FAERS Safety Report 13348690 (Version 1)
Quarter: 2017Q1

REPORT INFORMATION
  Report Type: Spontaneous
  Country: FR (occurrence: FR)
  Receive Date: 20170320
  Receipt Date: 20170320
  Transmission Date: 20170428
  Serious: Yes (Hospitalization, Other)
  Sender: FDA-Public Use
  Company Number: FR-BRISTOL-MYERS SQUIBB COMPANY-BMS-2017-021878

PATIENT
  Age: 73 Year
  Sex: Male

DRUGS (2)
  1. YERVOY [Suspect]
     Active Substance: IPILIMUMAB
     Indication: MALIGNANT MELANOMA
     Dosage: 225 MG, Q3WK
     Route: 065
     Dates: start: 20161223
  2. ASPIRIN. [Suspect]
     Active Substance: ASPIRIN
     Indication: PYREXIA
     Dosage: UNK
     Route: 048

REACTIONS (5)
  - Hepatocellular injury [Recovering/Resolving]
  - General physical condition abnormal [Unknown]
  - Jaundice cholestatic [Recovering/Resolving]
  - Diarrhoea [Recovered/Resolved]
  - Vomiting [Recovered/Resolved]

NARRATIVE: CASE EVENT DATE: 201702
